FAERS Safety Report 10911953 (Version 1)
Quarter: 2015Q1

REPORT INFORMATION
  Report Type: Spontaneous
  Country: US (occurrence: None)
  Receive Date: 20150310
  Receipt Date: 20150310
  Transmission Date: 20150721
  Serious: Yes (Hospitalization)
  Sender: FDA-Public Use
  Company Number: None

PATIENT
  Age: 13 Year
  Sex: Male
  Weight: 82.7 kg

DRUGS (1)
  1. ACTEMRA [Suspect]
     Active Substance: TOCILIZUMAB
     Indication: JUVENILE IDIOPATHIC ARTHRITIS
     Route: 042
     Dates: start: 20150211, end: 20150211

REACTIONS (6)
  - Hypotension [None]
  - Hypothermia [None]
  - Blindness [None]
  - Hyperhidrosis [None]
  - Anaphylactic reaction [None]
  - Sepsis [None]

NARRATIVE: CASE EVENT DATE: 20150211
